FAERS Safety Report 11103702 (Version 1)
Quarter: 2015Q2

REPORT INFORMATION
  Report Type: Spontaneous
  Country: TR (occurrence: None)
  Receive Date: 20150507
  Receipt Date: 20150507
  Transmission Date: 20150821
  Serious: Yes (Other)
  Sender: FDA-Public Use
  Company Number: UCM201504-000314

PATIENT

DRUGS (2)
  1. QUETIAPINE (QUETIAPINE) (QUETIAPINE) [Suspect]
     Active Substance: QUETIAPINE
     Indication: BIPOLAR DISORDER
  2. DIVALPROEX SODIUM (DIVALPROEX SODIUM) (DIVALPROEX SODIUM) [Suspect]
     Active Substance: DIVALPROEX SODIUM
     Indication: BIPOLAR DISORDER

REACTIONS (1)
  - Neutropenia [None]
